FAERS Safety Report 17387409 (Version 1)
Quarter: 2020Q1

REPORT INFORMATION
  Report Type: Spontaneous
  Country: US (occurrence: US)
  Receive Date: 20200206
  Receipt Date: 20200206
  Transmission Date: 20200409
  Serious: No
  Sender: FDA-Public Use
  Company Number: US-RADIUS HEALTH INC.-2019US004182

PATIENT
  Age: 85 Year
  Sex: Female

DRUGS (2)
  1. TYMLOS [Suspect]
     Active Substance: ABALOPARATIDE
     Indication: OSTEOPOROSIS
     Dosage: 80 MCG, QD
     Route: 058
     Dates: start: 20191114
  2. TYMLOS [Suspect]
     Active Substance: ABALOPARATIDE
     Indication: OSTEOPOROSIS POSTMENOPAUSAL
     Dosage: 80 MCG, QD
     Route: 058
     Dates: start: 20191114

REACTIONS (12)
  - Pain in extremity [Recovering/Resolving]
  - Headache [Recovering/Resolving]
  - Heart rate increased [Unknown]
  - Arthralgia [Unknown]
  - Product quality issue [Unknown]
  - Neck pain [Unknown]
  - Incorrect dose administered by product [Unknown]
  - Condition aggravated [Unknown]
  - Product dose omission [Recovered/Resolved]
  - Back pain [Unknown]
  - Underweight [Unknown]
  - Palpitations [Recovering/Resolving]

NARRATIVE: CASE EVENT DATE: 20191108
